FAERS Safety Report 25216597 (Version 1)
Quarter: 2025Q2

REPORT INFORMATION
  Report Type: Spontaneous
  Country: FR (occurrence: FR)
  Receive Date: 20250419
  Receipt Date: 20250419
  Transmission Date: 20250716
  Serious: Yes (Hospitalization)
  Sender: ACCORD
  Company Number: None

PATIENT
  Age: 77 Year
  Sex: Female
  Weight: 95 kg

DRUGS (18)
  1. LEVETIRACETAM [Suspect]
     Active Substance: LEVETIRACETAM
     Indication: Tonic convulsion
     Dosage: 1000MG 1-0-1
     Dates: start: 201903
  2. DULOXETINE [Suspect]
     Active Substance: DULOXETINE
     Indication: Mixed anxiety and depressive disorder
     Dates: start: 20240321, end: 20250206
  3. BROMAZEPAM [Suspect]
     Active Substance: BROMAZEPAM
     Indication: Mixed anxiety and depressive disorder
     Dosage: 0.25-0-0.5-0.5 TABLET
     Dates: start: 20190314, end: 20240321
  4. LORAZEPAM [Suspect]
     Active Substance: LORAZEPAM
     Indication: Mixed anxiety and depressive disorder
     Dates: start: 20240321, end: 20250203
  5. OXAZEPAM [Suspect]
     Active Substance: OXAZEPAM
     Indication: Mixed anxiety and depressive disorder
     Dosage: STRENGTH: 10 MG, 10MG 1.5 TABLETS IN THE EVENING
     Dates: start: 20241217, end: 20250210
  6. ESOMEPRAZOLE [Suspect]
     Active Substance: ESOMEPRAZOLE
     Indication: Product used for unknown indication
     Dates: start: 20190314
  7. RAMIPRIL [Suspect]
     Active Substance: RAMIPRIL
     Indication: Hypertension
     Dates: start: 20190314
  8. BENSERAZIDE HYDROCHLORIDE\LEVODOPA [Concomitant]
     Active Substance: BENSERAZIDE HYDROCHLORIDE\LEVODOPA
     Indication: Parkinsonism
     Dosage: STRENGTH: 62.5 (50 MG/12.5 MG), 1-0-1
  9. SODIUM ALGINATE [Concomitant]
     Active Substance: SODIUM ALGINATE
     Indication: Product used for unknown indication
     Dosage: 500MG 1-0-1
  10. BENSERAZIDE HYDROCHLORIDE\LEVODOPA [Concomitant]
     Active Substance: BENSERAZIDE HYDROCHLORIDE\LEVODOPA
     Indication: Parkinsonism
     Dosage: STRENGTH: 100 MG/25 MG, SCORED TABLET FOR ORAL?SUSPENSION, 2-0-2
  11. ROPINIROLE HYDROCHLORIDE [Concomitant]
     Active Substance: ROPINIROLE HYDROCHLORIDE
     Indication: Parkinsonism
     Dosage: 0-0-2 LP
  12. KARDEGIC [Concomitant]
     Active Substance: ASPIRIN DL-LYSINE
     Indication: Product used for unknown indication
     Dosage: STRENGTH: 75 MG
  13. POLYETHYLENE GLYCOL 3350 [Concomitant]
     Active Substance: POLYETHYLENE GLYCOL 3350
     Indication: Constipation
     Dosage: 2-0-0
  14. POTASSIUM CHLORIDE [Concomitant]
     Active Substance: POTASSIUM CHLORIDE
     Indication: Mineral supplementation
     Dosage: 1-0-0
  15. MOMETASONE FUROATE [Concomitant]
     Active Substance: MOMETASONE FUROATE
     Indication: Mineral supplementation
     Dosage: 0-0-0-1
  16. SODIUM BICARBONATE [Concomitant]
     Active Substance: SODIUM BICARBONATE
     Indication: Product used for unknown indication
     Dosage: 267MG 1-0-1
  17. DULOXETINE [Suspect]
     Active Substance: DULOXETINE
     Indication: Mixed anxiety and depressive disorder
     Dates: start: 20240206
  18. OXAZEPAM [Suspect]
     Active Substance: OXAZEPAM
     Indication: Mixed anxiety and depressive disorder
     Dosage: STRENGTH: 10 MG, 10MG 0.5 TABLET IN THE EVENING
     Dates: start: 20250210

REACTIONS (2)
  - Hyponatraemia [Not Recovered/Not Resolved]
  - Fall [Not Recovered/Not Resolved]

NARRATIVE: CASE EVENT DATE: 20240301
